FAERS Safety Report 7483252-3 (Version None)
Quarter: 2011Q2

REPORT INFORMATION
  Report Type: 
  Country: None (occurrence: None)
  Receive Date: 20110517
  Receipt Date: 20110507
  Transmission Date: 20111010
  Serious: Yes (Hospitalization, Other)
  Sender: FDA-Public Use
  Company Number: US-PAR PHARMACEUTICAL, INC-2011SCPR002967

PATIENT

DRUGS (2)
  1. DEXAMETHASONE [Suspect]
     Indication: STEROID THERAPY
     Dosage: 4 MG, QID
     Route: 042
     Dates: start: 20100101
  2. DEXAMETHASONE [Suspect]
     Dosage: 1 MG, BID
     Route: 048

REACTIONS (1)
  - POSTERIOR REVERSIBLE ENCEPHALOPATHY SYNDROME [None]
